FAERS Safety Report 13183744 (Version 2)
Quarter: 2018Q3

REPORT INFORMATION
  Report Type: Spontaneous
  Country: ES (occurrence: ES)
  Receive Date: 20170203
  Receipt Date: 20180710
  Transmission Date: 20181010
  Serious: Yes (Other)
  Sender: FDA-Public Use
  Company Number: ES-GLENMARK PHARMACEUTICALS-2017GMK026128

PATIENT
  Age: 8 Decade
  Sex: Male

DRUGS (6)
  1. AZITHROMYCIN ANHYDROUS. [Concomitant]
     Active Substance: AZITHROMYCIN ANHYDROUS
     Indication: MYCOBACTERIUM AVIUM COMPLEX INFECTION
     Dosage: 250 MG, OD
     Route: 048
  2. LINEZOLID. [Suspect]
     Active Substance: LINEZOLID
     Indication: MYCOBACTERIUM KANSASII INFECTION
  3. ETHAMBUTOL [Concomitant]
     Active Substance: ETHAMBUTOL HYDROCHLORIDE
     Indication: MYCOBACTERIUM AVIUM COMPLEX INFECTION
  4. ETHAMBUTOL [Concomitant]
     Active Substance: ETHAMBUTOL HYDROCHLORIDE
     Indication: MYCOBACTERIUM KANSASII INFECTION
     Dosage: 15 MG/KG, OD
     Route: 048
  5. LINEZOLID. [Suspect]
     Active Substance: LINEZOLID
     Indication: MYCOBACTERIUM AVIUM COMPLEX INFECTION
     Dosage: 600 MG, BID
     Route: 048
  6. AZITHROMYCIN ANHYDROUS. [Concomitant]
     Active Substance: AZITHROMYCIN ANHYDROUS
     Indication: MYCOBACTERIUM KANSASII INFECTION

REACTIONS (4)
  - Anaemia [Recovering/Resolving]
  - Nausea [Recovered/Resolved]
  - Toxicity to various agents [Recovering/Resolving]
  - Bone marrow failure [Recovering/Resolving]
